FAERS Safety Report 6041055-0 (Version None)
Quarter: 2009Q1

REPORT INFORMATION
  Report Type: 
  Country: None (occurrence: None)
  Receive Date: 20090116
  Receipt Date: 20080806
  Transmission Date: 20090719
  Serious: No
  Sender: FDA-Public Use
  Company Number: US-BRISTOL-MYERS SQUIBB COMPANY-14291306

PATIENT
  Age: 3 Decade
  Sex: Female

DRUGS (3)
  1. ABILIFY [Suspect]
     Indication: MAJOR DEPRESSION
     Dosage: BEGAN 2MG QD 2 MONTHS AGO FOR 1 WEEK,  DOSE INCEASED TO 5MG QD. DECREASED TO 2MG DAILY
     Dates: start: 20080101
  2. ABILIFY [Suspect]
     Indication: GENERALISED ANXIETY DISORDER
     Dosage: BEGAN 2MG QD 2 MONTHS AGO FOR 1 WEEK,  DOSE INCEASED TO 5MG QD. DECREASED TO 2MG DAILY
     Dates: start: 20080101
  3. LEXAPRO [Concomitant]

REACTIONS (1)
  - JOINT STIFFNESS [None]
